FAERS Safety Report 6813439-1 (Version None)
Quarter: 2010Q3

REPORT INFORMATION
  Report Type: 
  Country: None (occurrence: None)
  Receive Date: 20100701
  Receipt Date: 20100622
  Transmission Date: 20110219
  Serious: Yes (Hospitalization)
  Sender: FDA-Public Use
  Company Number: Z0004377A

PATIENT
  Sex: Male
  Weight: 80 kg

DRUGS (3)
  1. OFATUMUMAB [Suspect]
     Route: 042
     Dates: start: 20100322
  2. FLUDARABINE PHOSPHATE [Suspect]
     Route: 042
     Dates: start: 20100322
  3. CYCLOPHOSPHAMIDE [Suspect]
     Route: 042
     Dates: start: 20100322

REACTIONS (1)
  - PNEUMONIA [None]
